FAERS Safety Report 4660254-3 (Version None)
Quarter: 2005Q2

REPORT INFORMATION
  Report Type: 
  Country: None (occurrence: None)
  Receive Date: 20050427
  Receipt Date: 20050106
  Transmission Date: 20051028
  Serious: No
  Sender: FDA-Public Use
  Company Number: 211547

PATIENT
  Age: 22 Year
  Sex: Male
  Weight: 56.7 kg

DRUGS (3)
  1. XOLAIR [Suspect]
     Indication: ASTHMA
     Dosage: Q2W, SUBCUTANEOUS
     Route: 058
     Dates: start: 20040201, end: 20041230
  2. PULMICORT [Concomitant]
  3. SINGULAIR [Concomitant]

REACTIONS (1)
  - ERECTILE DYSFUNCTION [None]
